FAERS Safety Report 13920792 (Version 2)
Quarter: 2017Q3

REPORT INFORMATION
  Report Type: Spontaneous
  Country: US (occurrence: CA)
  Receive Date: 20170830
  Receipt Date: 20170831
  Transmission Date: 20171127
  Serious: Yes (Hospitalization)
  Sender: FDA-Public Use
  Company Number: US-ASTRAZENECA-2017SE87609

PATIENT
  Age: 24969 Day
  Sex: Male
  Weight: 83.5 kg

DRUGS (8)
  1. BISOPROLOL [Concomitant]
     Active Substance: BISOPROLOL
     Indication: ADJUVANT THERAPY
     Dosage: 5.0MG UNKNOWN
     Route: 065
  2. LIPITOR [Concomitant]
     Active Substance: ATORVASTATIN CALCIUM
     Indication: ADJUVANT THERAPY
     Route: 065
  3. LIPITOR [Concomitant]
     Active Substance: ATORVASTATIN CALCIUM
     Indication: ADJUVANT THERAPY
     Route: 065
     Dates: start: 20160615
  4. BISOPROLOL [Concomitant]
     Active Substance: BISOPROLOL
     Indication: ADJUVANT THERAPY
     Route: 065
     Dates: start: 20160615
  5. COVERSYL [Concomitant]
     Active Substance: PERINDOPRIL
     Indication: BLOOD PRESSURE ABNORMAL
     Route: 065
     Dates: start: 20160615
  6. BISOPROLOL [Concomitant]
     Active Substance: BISOPROLOL
     Indication: ADJUVANT THERAPY
     Dosage: 7.5MG UNKNOWN
     Route: 065
  7. BRILINTA [Suspect]
     Active Substance: TICAGRELOR
     Indication: ARTERIAL OCCLUSIVE DISEASE
     Route: 048
     Dates: start: 20160615, end: 20170818
  8. ASPIRIN. [Concomitant]
     Active Substance: ASPIRIN
     Indication: ADJUVANT THERAPY
     Route: 048
     Dates: start: 20160615

REACTIONS (14)
  - Musculoskeletal stiffness [Unknown]
  - Heart rate abnormal [Unknown]
  - Fibromyalgia [Unknown]
  - Insomnia [Unknown]
  - Blood pressure decreased [Unknown]
  - Polymyalgia rheumatica [Unknown]
  - Pulse abnormal [Unknown]
  - Pain in extremity [Unknown]
  - Palpitations [Unknown]
  - Gait disturbance [Unknown]
  - Presyncope [Unknown]
  - Off label use [Recovered/Resolved]
  - Pain [Unknown]
  - Product use issue [Recovered/Resolved]

NARRATIVE: CASE EVENT DATE: 20160615
